FAERS Safety Report 11839909 (Version 1)
Quarter: 2015Q4

REPORT INFORMATION
  Report Type: Spontaneous
  Country: US (occurrence: None)
  Receive Date: 20151215
  Receipt Date: 20151215
  Transmission Date: 20160305
  Serious: Yes (Other)
  Sender: FDA-Public Use
  Company Number: None

PATIENT
  Age: 67 Year
  Sex: Male
  Weight: 80.29 kg

DRUGS (17)
  1. COQ10 [Concomitant]
     Active Substance: UBIDECARENONE
  2. D3 K2 [Concomitant]
  3. HOLY BASIL [Concomitant]
  4. OMEGA 3 [Concomitant]
     Active Substance: OMEGA-3 FATTY ACIDS
  5. ASPIRIN. [Concomitant]
     Active Substance: ASPIRIN
  6. GARLIC. [Concomitant]
     Active Substance: GARLIC
  7. MYRBETRIQ [Suspect]
     Active Substance: MIRABEGRON
     Indication: POOR QUALITY SLEEP
     Route: 048
     Dates: start: 20151210, end: 20151213
  8. MULTI ONE [Concomitant]
  9. NIACIN. [Concomitant]
     Active Substance: NIACIN
  10. PROSTATE HEALTH SUPPORT [Concomitant]
  11. MYRBETRIQ [Suspect]
     Active Substance: MIRABEGRON
     Indication: HYPERTONIC BLADDER
     Route: 048
     Dates: start: 20151210, end: 20151213
  12. E [Concomitant]
  13. ESTER C [Concomitant]
  14. L-CARNITINE FUMARATE [Concomitant]
  15. CINNAMON. [Concomitant]
     Active Substance: CINNAMON
  16. CURCUMIN C3 COMPLEX [Concomitant]
  17. GINGER. [Concomitant]
     Active Substance: GINGER

REACTIONS (6)
  - Weight decreased [None]
  - Back pain [None]
  - Blood pressure increased [None]
  - Palpitations [None]
  - Diarrhoea [None]
  - Myalgia [None]

NARRATIVE: CASE EVENT DATE: 20151213
